FAERS Safety Report 9893546 (Version 1)
Quarter: 2014Q1

REPORT INFORMATION
  Report Type: Spontaneous
  Country: IT (occurrence: IT)
  Receive Date: 20140213
  Receipt Date: 20140213
  Transmission Date: 20141002
  Serious: Yes (Other)
  Sender: FDA-Public Use
  Company Number: IT-MYLANLABS-2014S1002512

PATIENT
  Age: 40 Year
  Sex: Female
  Weight: 80 kg

DRUGS (8)
  1. FLUOXETINE HYDROCHLORIDE [Suspect]
     Indication: WEIGHT LOSS DIET
     Route: 048
     Dates: start: 20130101, end: 20131101
  2. FLUOXETINE HYDROCHLORIDE [Suspect]
     Indication: OFF LABEL USE
     Route: 048
     Dates: start: 20130101, end: 20131101
  3. METFORMIN HYDROCHLORIDE [Suspect]
     Indication: WEIGHT LOSS DIET
     Route: 048
     Dates: start: 20130101, end: 20131101
  4. METFORMIN HYDROCHLORIDE [Suspect]
     Indication: OFF LABEL USE
     Route: 048
     Dates: start: 20130101, end: 20131101
  5. BUPROPION HYDROCHLORIDE [Suspect]
     Indication: WEIGHT LOSS DIET
     Route: 048
     Dates: start: 20130101, end: 20131101
  6. BUPROPION HYDROCHLORIDE [Suspect]
     Indication: OFF LABEL USE
     Route: 048
     Dates: start: 20130101, end: 20131101
  7. EPHEDRINE HYDROCHLORIDE [Suspect]
     Indication: WEIGHT LOSS DIET
     Route: 048
     Dates: start: 20130101, end: 20131101
  8. EPHEDRINE HYDROCHLORIDE [Suspect]
     Indication: OFF LABEL USE
     Route: 048
     Dates: start: 20130101, end: 20131101

REACTIONS (4)
  - Dysphoria [Recovering/Resolving]
  - Insomnia [Recovering/Resolving]
  - Reactive psychosis [Recovering/Resolving]
  - Off label use [Recovering/Resolving]
